FAERS Safety Report 6489715-1 (Version None)
Quarter: 2009Q4

REPORT INFORMATION
  Report Type: 
  Country: None (occurrence: None)
  Receive Date: 20091207
  Receipt Date: 20091129
  Transmission Date: 20100525
  Serious: Yes (Other)
  Sender: FDA-Public Use
  Company Number: 09US005386

PATIENT
  Age: 45 Year
  Sex: Female
  Weight: 58.5 kg

DRUGS (2)
  1. TUSSIN PE CF LIQ 516(DEXTROMETHORPHAN HYDROBROMIDE,  GUAIFENESIN, PHEN [Suspect]
     Indication: NASAL CONGESTION
     Dosage: 10 ML SINGLE, ORAL
     Route: 048
     Dates: start: 20091128, end: 20091128
  2. TUSSIN PE CF LIQ 516(DEXTROMETHORPHAN HYDROBROMIDE,  GUAIFENESIN, PHEN [Suspect]
     Indication: NASOPHARYNGITIS
     Dosage: 10 ML SINGLE, ORAL
     Route: 048
     Dates: start: 20091128, end: 20091128

REACTIONS (1)
  - DRUG HYPERSENSITIVITY [None]
